FAERS Safety Report 20584980 (Version 2)
Quarter: 2022Q2

REPORT INFORMATION
  Report Type: Report from Study
  Country: US (occurrence: US)
  Receive Date: 20220311
  Receipt Date: 20220411
  Transmission Date: 20220720
  Serious: Yes (Other)
  Sender: FDA-Public Use
  Company Number: US-Taiho Oncology Inc-EU-2022-00607

PATIENT
  Age: 67 Year
  Sex: Female
  Weight: 53.849 kg

DRUGS (11)
  1. LONSURF [Suspect]
     Active Substance: TIPIRACIL HYDROCHLORIDE\TRIFLURIDINE
     Indication: Rectal cancer
     Dosage: CYCLE NUMBER IS 1
     Route: 048
     Dates: start: 20220204, end: 20220304
  2. ZOFRAN [Concomitant]
     Active Substance: ONDANSETRON HYDROCHLORIDE
  3. LAMOTRIGINE [Concomitant]
     Active Substance: LAMOTRIGINE
  4. KEPPRA [Concomitant]
     Active Substance: LEVETIRACETAM
  5. KEPPRA [Concomitant]
     Active Substance: LEVETIRACETAM
     Dosage: SOLUTION
  6. CLONAZEPAM [Concomitant]
     Active Substance: CLONAZEPAM
  7. NIFEDIPINE [Concomitant]
     Active Substance: NIFEDIPINE
     Dosage: ER
  8. LETROZOLE [Concomitant]
     Active Substance: LETROZOLE
  9. VITAMINS [Concomitant]
     Active Substance: VITAMINS
  10. CITRACAL+VITAMIN D3 [Concomitant]
  11. XARELTO [Concomitant]
     Active Substance: RIVAROXABAN

REACTIONS (1)
  - Thrombosis [Recovered/Resolved]

NARRATIVE: CASE EVENT DATE: 20220221
